FAERS Safety Report 4537193-1 (Version None)
Quarter: 2004Q4

REPORT INFORMATION
  Report Type: 
  Country: None (occurrence: None)
  Receive Date: 20041223
  Receipt Date: 20041124
  Transmission Date: 20050328
  Serious: Yes (Hospitalization)
  Sender: FDA-Public Use
  Company Number: PHEH2004US12697

PATIENT
  Age: 67 Year
  Sex: Female
  Weight: 88 kg

DRUGS (6)
  1. NORVASC [Concomitant]
     Indication: HYPERTENSION
  2. NAPROSYN [Concomitant]
     Dosage: 500 MG TWICE DAILY
     Route: 048
     Dates: start: 20011004, end: 20040917
  3. MAXZIDE [Concomitant]
     Indication: HYPERTENSION
     Dosage: 375/25 MG DAILY
     Route: 048
     Dates: start: 20011004, end: 20040917
  4. TOPROL-XL [Concomitant]
     Indication: HYPERTENSION
     Dosage: 100 MG, BID
     Route: 048
     Dates: start: 20000907, end: 20040917
  5. CLONIDINE [Concomitant]
     Indication: HYPERTENSION
     Dosage: 0.1 MG, TID
     Route: 048
     Dates: start: 20010606, end: 20040917
  6. DIOVAN [Suspect]
     Indication: HYPERTENSION
     Dosage: TWO 80 MG DAILY
     Route: 048

REACTIONS (5)
  - FEELING ABNORMAL [None]
  - HEADACHE [None]
  - HYPERHIDROSIS [None]
  - PALPITATIONS [None]
  - PULSE ABNORMAL [None]
